FAERS Safety Report 7262168-1 (Version None)
Quarter: 2011Q1

REPORT INFORMATION
  Report Type: 
  Country: None (occurrence: None)
  Receive Date: 20110130
  Receipt Date: 20101203
  Transmission Date: 20110831
  Serious: No
  Sender: FDA-Public Use
  Company Number: US-ABBOTT-10P-163-0689244-00

PATIENT
  Sex: Male
  Weight: 95.34 kg

DRUGS (6)
  1. LORTAB [Concomitant]
     Indication: ABDOMINAL PAIN
     Dosage: 7.5/?
     Route: 048
     Dates: start: 20080101
  2. HUMIRA [Suspect]
     Indication: CROHN'S DISEASE
     Route: 058
     Dates: start: 20101118
  3. PREDNISONE [Concomitant]
     Indication: CROHN'S DISEASE
     Dosage: TAPER
     Route: 048
  4. LORTAB [Concomitant]
     Indication: CROHN'S DISEASE
  5. NITROGLYCERIN [Concomitant]
     Indication: WOLFF-PARKINSON-WHITE SYNDROME
     Dosage: SPARINGLY USED
     Route: 060
     Dates: start: 19890101
  6. LORTAB [Concomitant]
     Indication: MUSCLE SPASMS

REACTIONS (4)
  - ABDOMINAL PAIN [None]
  - PRURITUS GENERALISED [None]
  - MIGRAINE [None]
  - SKIN BURNING SENSATION [None]
